FAERS Safety Report 8762340 (Version 2)
Quarter: 2012Q4

REPORT INFORMATION
  Report Type: 
  Country: JP (occurrence: JP)
  Receive Date: 20120829
  Receipt Date: 20121101
  Transmission Date: 20130627
  Serious: Yes (Other)
  Sender: FDA-Public Use
  Company Number: JP-PFIZER INC-2012206327

PATIENT

DRUGS (1)
  1. AZULFIDINE EN [Suspect]
     Dosage: 1000 mg, UNK
     Dates: start: 201204

REACTIONS (1)
  - Dyskinesia [Recovered/Resolved]
